FAERS Safety Report 8387561-5 (Version None)
Quarter: 2012Q2

REPORT INFORMATION
  Report Type: 
  Country: None (occurrence: None)
  Receive Date: 20120525
  Receipt Date: 20120522
  Transmission Date: 20120825
  Serious: Yes (Death, Disabling, Other)
  Sender: FDA-Public Use
  Company Number: PHHY2012JP026039

PATIENT
  Sex: Female
  Weight: 54 kg

DRUGS (46)
  1. ACYCLOVIR [Concomitant]
     Route: 048
  2. PROGRAF [Concomitant]
     Dosage: UNK UKN, UNK
     Route: 041
  3. ATARAX [Concomitant]
     Route: 041
  4. DORIPENEM MONOHYDRATE [Concomitant]
     Dosage: UNK UKN, UNK
     Route: 041
  5. HUMULIN R [Concomitant]
     Dosage: UNK UKN, UNK
     Route: 041
  6. LACTEC [Concomitant]
     Dosage: UNK UKN, UNK
     Route: 041
  7. ALLOID [Concomitant]
     Dosage: UNK UKN, UNK
     Route: 048
  8. PROMACTA [Concomitant]
     Dosage: UNK UKN, UNK
     Route: 048
  9. XYLOCAINE [Concomitant]
     Dosage: UNK UKN, UNK
     Route: 065
  10. SOLU-CORTEF [Concomitant]
     Dosage: UNK UKN, UNK
  11. METHYLPREDNISOLONE SODIUM SUCCINATE [Concomitant]
     Dosage: UNK UKN, UNK
     Route: 041
  12. M.V.I.-12 [Concomitant]
     Dosage: UNK UKN, UNK
     Route: 041
  13. LIDOMEX [Concomitant]
     Dosage: UNK UKN, UNK
     Route: 065
  14. ARTIFICIAL TEARS                   = [Concomitant]
     Dosage: UNK UKN, UNK
  15. FLUDARABINE PHOSPHATE [Concomitant]
     Dosage: UNK UKN, UNK
     Route: 065
     Dates: start: 20120308
  16. SODIUM BICARBONATE [Concomitant]
     Dosage: UNK UKN, UNK
     Route: 042
  17. SODIUM BICARBONATE [Concomitant]
     Route: 041
  18. AMINO ACIDS [Concomitant]
     Indication: RENAL FAILURE
     Dosage: UNK UKN, UNK
     Route: 041
  19. OMEPRAZOLE [Concomitant]
     Route: 048
  20. NEUTROGIN [Concomitant]
     Dosage: UNK UKN, UNK
     Route: 041
  21. AZACTAM                                 /SCH/ [Concomitant]
     Dosage: UNK UKN, UNK
     Route: 041
  22. DOBUTAMINE HCL [Concomitant]
     Route: 041
  23. ACETAMINOPHEN [Concomitant]
     Dosage: UNK UKN, UNK
     Route: 051
  24. CELECOXIB [Concomitant]
     Dosage: UNK UKN, UNK
     Route: 048
  25. MEROPENEM [Concomitant]
     Route: 041
  26. METHOTREXATE [Concomitant]
     Dosage: UNK UKN, UNK
     Route: 041
  27. HEPARIN SODIUM [Concomitant]
     Dosage: UNK UKN, UNK
     Route: 041
  28. DOPAMINE HCL [Concomitant]
     Dosage: UNK UKN, UNK
     Route: 041
  29. FULMETA [Concomitant]
     Dosage: UNK UKN, UNK
     Route: 065
  30. OXINORM [Concomitant]
     Dosage: UNK UKN, UNK
     Route: 048
  31. MIYA-BM [Concomitant]
     Dosage: UNK UKN, UNK
     Route: 048
  32. POTASSIUM CHLORIDE [Concomitant]
     Dosage: UNK UKN, UNK
     Route: 041
  33. HIRUDOID [Concomitant]
     Dosage: UNK UKN, UNK
     Route: 065
  34. SANDIMMUNE [Suspect]
     Indication: PROPHYLAXIS AGAINST GRAFT VERSUS HOST DISEASE
     Dosage: BID
     Route: 042
     Dates: start: 20120312, end: 20120321
  35. MUCOSTA [Concomitant]
     Route: 048
  36. CLOSTRIDIUM BUTYRICUM [Concomitant]
     Route: 048
  37. FUROSEMIDE [Concomitant]
     Dosage: UNK UKN, UNK
     Route: 042
  38. FUROSEMIDE [Concomitant]
     Route: 041
  39. EPINASTINE HYDROCHLORIDE [Concomitant]
     Dosage: UNK UKN, UNK
     Route: 048
  40. FLUCONAZOLE [Concomitant]
     Route: 048
  41. LEVOFLOXACIN [Concomitant]
     Route: 048
  42. AZACTAM [Concomitant]
     Route: 042
  43. PROGRAF [Concomitant]
     Indication: PROPHYLAXIS AGAINST GRAFT VERSUS HOST DISEASE
     Dosage: UNK UKN, UNK
     Route: 042
     Dates: start: 20120323, end: 20120411
  44. ALKERAN [Concomitant]
     Dosage: UNK UKN, UNK
     Route: 065
     Dates: start: 20120308
  45. NEUTROGIN [Concomitant]
     Route: 058
  46. ACETAMINOPHEN [Concomitant]
     Dosage: UNK UKN, UNK
     Route: 048

REACTIONS (15)
  - OXYGEN SATURATION DECREASED [None]
  - ENGRAFT FAILURE [None]
  - CARDIAC FAILURE [None]
  - ACUTE RESPIRATORY DISTRESS SYNDROME [None]
  - PAIN [None]
  - PRURITUS [None]
  - WEIGHT INCREASED [None]
  - RHABDOMYOLYSIS [None]
  - BLOOD CREATINE PHOSPHOKINASE INCREASED [None]
  - MUSCULAR WEAKNESS [None]
  - BLOOD UREA INCREASED [None]
  - FEBRILE NEUTROPENIA [None]
  - ASPARTATE AMINOTRANSFERASE INCREASED [None]
  - TOXIC SKIN ERUPTION [None]
  - BLOOD LACTATE DEHYDROGENASE INCREASED [None]
